FAERS Safety Report 7154067-0 (Version None)
Quarter: 2010Q4

REPORT INFORMATION
  Report Type: 
  Country: None (occurrence: None)
  Receive Date: 20101213
  Receipt Date: 20101209
  Transmission Date: 20110411
  Serious: Yes (Hospitalization)
  Sender: FDA-Public Use
  Company Number: CHPA2010GB18848

PATIENT
  Sex: Female

DRUGS (1)
  1. NICOTINELL TTS (NCH) [Suspect]
     Dosage: UNK, UNK
     Route: 062
     Dates: start: 20101208

REACTIONS (2)
  - PULMONARY HYPERTENSION [None]
  - PULMONARY OEDEMA [None]
